FAERS Safety Report 10586714 (Version 1)
Quarter: 2014Q4

REPORT INFORMATION
  Report Type: Spontaneous
  Country: US (occurrence: None)
  Receive Date: 20141114
  Receipt Date: 20141114
  Transmission Date: 20150529
  Serious: Yes (Other)
  Sender: FDA-Public Use
  Company Number: None

PATIENT
  Age: 70 Year
  Sex: Male
  Weight: 83.3 kg

DRUGS (3)
  1. DEXAMETHASONE. [Suspect]
     Active Substance: DEXAMETHASONE
     Indication: PLASMA CELL MYELOMA
     Dosage: D1 = 10/17/2014    40 MG,  DAYS 1, 8, 15, 22
     Dates: start: 20141017
  2. LEVAQUIN [Concomitant]
     Active Substance: LEVOFLOXACIN
  3. REVLIMID [Suspect]
     Active Substance: LENALIDOMIDE
     Indication: PLASMA CELL MYELOMA
     Dosage: D1 = 10/17/2014    25 MG DAILY  1-21
     Dates: start: 20141017

REACTIONS (2)
  - Pneumonia [None]
  - Musculoskeletal chest pain [None]

NARRATIVE: CASE EVENT DATE: 20141031
